FAERS Safety Report 12123311 (Version 1)
Quarter: 2016Q1

REPORT INFORMATION
  Report Type: Spontaneous
  Country: US (occurrence: None)
  Receive Date: 20160226
  Receipt Date: 20160226
  Transmission Date: 20160526
  Serious: No
  Sender: FDA-Public Use
  Company Number: None

PATIENT
  Age: 69 Year
  Sex: Female

DRUGS (1)
  1. GILENYA [Suspect]
     Active Substance: FINGOLIMOD HYDROCHLORIDE
     Indication: MULTIPLE SCLEROSIS
     Route: 048
     Dates: start: 201508

REACTIONS (7)
  - Paraesthesia [None]
  - Asthenia [None]
  - Hypoaesthesia [None]
  - Oropharyngeal pain [None]
  - Epistaxis [None]
  - Cough [None]
  - Abdominal pain upper [None]

NARRATIVE: CASE EVENT DATE: 20160126
